FAERS Safety Report 9473101 (Version 2)
Quarter: 2013Q3

REPORT INFORMATION
  Report Type: Spontaneous
  Country: US (occurrence: US)
  Receive Date: 20130823
  Receipt Date: 20130823
  Transmission Date: 20140515
  Serious: No
  Sender: FDA-Public Use
  Company Number: US-BRISTOL-MYERS SQUIBB COMPANY-17439134

PATIENT
  Age: 18 Year
  Sex: Female

DRUGS (5)
  1. SPRYCEL [Suspect]
     Indication: CHRONIC MYELOID LEUKAEMIA
     Route: 048
     Dates: start: 20121011
  2. BIOTIN [Concomitant]
  3. ZOFRAN [Concomitant]
  4. MAALOX [Concomitant]
  5. ONDANSETRON [Concomitant]

REACTIONS (2)
  - Dyspnoea exertional [Unknown]
  - Weight increased [Unknown]
